FAERS Safety Report 16571670 (Version 1)
Quarter: 2019Q3

REPORT INFORMATION
  Report Type: Spontaneous
  Country: US (occurrence: US)
  Receive Date: 20190715
  Receipt Date: 20190715
  Transmission Date: 20191004
  Serious: No
  Sender: FDA-Public Use
  Company Number: US-APOTEX-2019AP017250

PATIENT

DRUGS (4)
  1. CLONIDINE. [Suspect]
     Active Substance: CLONIDINE
     Indication: DRUG PROVOCATION TEST
     Dosage: UNK
     Route: 065
  2. CLONIDINE. [Suspect]
     Active Substance: CLONIDINE
     Indication: SOMATOTROPIN STIMULATION TEST
  3. ARGININE [Suspect]
     Active Substance: ARGININE
     Indication: SOMATOTROPIN STIMULATION TEST
  4. ARGININE [Suspect]
     Active Substance: ARGININE
     Indication: DRUG PROVOCATION TEST
     Dosage: UNK
     Route: 065

REACTIONS (1)
  - Haematuria [Recovered/Resolved]
